FAERS Safety Report 17415852 (Version 1)
Quarter: 2020Q1

REPORT INFORMATION
  Report Type: Spontaneous
  Country: US (occurrence: US)
  Receive Date: 20200213
  Receipt Date: 20200213
  Transmission Date: 20200409
  Serious: No
  Sender: FDA-Public Use
  Company Number: US-SUNOVION-2020SUN000338

PATIENT
  Sex: Female

DRUGS (3)
  1. BROVANA [Suspect]
     Active Substance: ARFORMOTEROL TARTRATE
     Indication: CHRONIC OBSTRUCTIVE PULMONARY DISEASE
     Dosage: UNK, QD
     Route: 055
  2. BROVANA [Suspect]
     Active Substance: ARFORMOTEROL TARTRATE
     Dosage: UNK
     Route: 055
     Dates: start: 201905
  3. OXYGEN. [Concomitant]
     Active Substance: OXYGEN

REACTIONS (2)
  - Drug ineffective [Not Recovered/Not Resolved]
  - Off label use [Unknown]
